FAERS Safety Report 5480820-5 (Version None)
Quarter: 2007Q4

REPORT INFORMATION
  Report Type: 
  Country: None (occurrence: None)
  Receive Date: 20071009
  Receipt Date: 20070925
  Transmission Date: 20080405
  Serious: No
  Sender: FDA-Public Use
  Company Number: US-BOEHRINGER INGELHEIM PHARMACEUTICALS, INC.-2007-BP-20016BP

PATIENT
  Sex: Male

DRUGS (8)
  1. CATAPRES-TTS-1 [Suspect]
     Indication: HYPERTENSION
     Route: 061
  2. PLAVIX [Concomitant]
  3. SULAR [Concomitant]
     Indication: HYPERTENSION
  4. HYZAAR [Concomitant]
     Indication: HYPERTENSION
  5. ATENOLOL [Concomitant]
  6. CLONIDINE [Concomitant]
     Route: 061
  7. NOVOLIN 70/30 [Concomitant]
  8. ASPIRIN [Concomitant]
     Indication: ARTHRALGIA

REACTIONS (2)
  - BLOOD PRESSURE INADEQUATELY CONTROLLED [None]
  - DIZZINESS [None]
